FAERS Safety Report 19149098 (Version 1)
Quarter: 2021Q2

REPORT INFORMATION
  Report Type: Spontaneous
  Country: US (occurrence: US)
  Receive Date: 20210416
  Receipt Date: 20210416
  Transmission Date: 20210717
  Serious: Yes (Other)
  Sender: FDA-Public Use
  Company Number: US-TEVA-2021-US-1899790

PATIENT
  Age: 54 Year
  Sex: Female

DRUGS (1)
  1. TAMOXIFEN CITRATE. [Suspect]
     Active Substance: TAMOXIFEN CITRATE
     Route: 065

REACTIONS (6)
  - Food allergy [Unknown]
  - Angioedema [Unknown]
  - Inflammation [Unknown]
  - Swelling [Unknown]
  - Product formulation issue [Unknown]
  - Milk allergy [Unknown]
